FAERS Safety Report 7755249-7 (Version None)
Quarter: 2011Q3

REPORT INFORMATION
  Report Type: 
  Country: None (occurrence: None)
  Receive Date: 20110913
  Receipt Date: 20110831
  Transmission Date: 20111222
  Serious: Yes (Other)
  Sender: FDA-Public Use
  Company Number: 2011SP041398

PATIENT
  Age: 55 Year
  Sex: Male

DRUGS (4)
  1. RIBAVIRIN [Suspect]
     Indication: HEPATITIS C
     Dates: start: 20070101
  2. RIBAVIRIN [Suspect]
     Indication: HEPATITIS C
     Dates: end: 20110215
  3. PEG-INTRON [Suspect]
     Indication: HEPATITIS C
     Dates: end: 20110215
  4. PEG-INTRON [Suspect]
     Indication: HEPATITIS C
     Dates: start: 20070101

REACTIONS (1)
  - CARDIAC VALVE DISEASE [None]
